FAERS Safety Report 24261741 (Version 11)
Quarter: 2025Q4

REPORT INFORMATION
  Report Type: Report from Study
  Country: CA (occurrence: CA)
  Receive Date: 20240829
  Receipt Date: 20251117
  Transmission Date: 20260117
  Serious: Yes (Other)
  Sender: JOHNSON AND JOHNSON
  Company Number: CA-JNJFOC-20231137048

PATIENT
  Age: 68 Year
  Sex: Female
  Weight: 110 kg

DRUGS (9)
  1. SIMPONI [Suspect]
     Active Substance: GOLIMUMAB
     Indication: Rheumatoid arthritis
     Dosage: FREQUENCY:1
     Route: 041
     Dates: start: 20231017
  2. SIMPONI [Suspect]
     Active Substance: GOLIMUMAB
     Route: 041
     Dates: start: 20221017
  3. SIMPONI [Suspect]
     Active Substance: GOLIMUMAB
     Dosage: FREQUENCY:1
     Route: 041
     Dates: start: 20231017
  4. SIMPONI [Suspect]
     Active Substance: GOLIMUMAB
     Route: 041
     Dates: start: 20231017
  5. SIMPONI [Suspect]
     Active Substance: GOLIMUMAB
     Route: 041
     Dates: start: 20240913
  6. SIMPONI [Suspect]
     Active Substance: GOLIMUMAB
     Route: 041
  7. SIMPONI [Suspect]
     Active Substance: GOLIMUMAB
     Dosage: FREQUENCY:1
     Route: 041
  8. SIMPONI [Suspect]
     Active Substance: GOLIMUMAB
     Route: 041
  9. SIMPONI [Suspect]
     Active Substance: GOLIMUMAB
     Route: 041

REACTIONS (12)
  - Hypercalcaemia [Unknown]
  - Humerus fracture [Recovering/Resolving]
  - Fall [Recovering/Resolving]
  - Rheumatoid arthritis [Recovering/Resolving]
  - Influenza like illness [Recovered/Resolved]
  - Oral candidiasis [Recovering/Resolving]
  - Skin fissures [Recovering/Resolving]
  - Peripheral swelling [Unknown]
  - Tendon rupture [Unknown]
  - Mononeuropathy [Not Recovered/Not Resolved]
  - Erythema [Recovering/Resolving]
  - Osteoarthritis [Unknown]

NARRATIVE: CASE EVENT DATE: 20240201
